FAERS Safety Report 5068979-5 (Version None)
Quarter: 2006Q3

REPORT INFORMATION
  Report Type: 
  Country: None (occurrence: None)
  Receive Date: 20060801
  Receipt Date: 20060801
  Transmission Date: 20061208
  Serious: Yes (Hospitalization, Disabling)
  Sender: FDA-Public Use
  Company Number: None

PATIENT
  Age: 75 Year
  Sex: Female

DRUGS (1)
  1. RISPERDAL [Suspect]
     Dosage: 1 MG PO
     Route: 048
     Dates: start: 20060610, end: 20060612

REACTIONS (9)
  - ABNORMAL BEHAVIOUR [None]
  - ANTICHOLINERGIC SYNDROME [None]
  - BLOOD PRESSURE INCREASED [None]
  - BODY TEMPERATURE INCREASED [None]
  - DRUG INEFFECTIVE [None]
  - ERYTHEMA [None]
  - HEART RATE INCREASED [None]
  - NEUROLEPTIC MALIGNANT SYNDROME [None]
  - SKIN WARM [None]
